FAERS Safety Report 6244446-8 (Version None)
Quarter: 2009Q2

REPORT INFORMATION
  Report Type: 
  Country: None (occurrence: None)
  Receive Date: 20090625
  Receipt Date: 20090616
  Transmission Date: 20091009
  Serious: Yes (Death, Hospitalization)
  Sender: FDA-Public Use
  Company Number: FR-ABBOTT-09P-056-0579555-00

PATIENT
  Sex: Female
  Weight: 81 kg

DRUGS (5)
  1. HUMIRA [Suspect]
     Indication: RHEUMATOID ARTHRITIS
     Route: 058
     Dates: start: 20040329, end: 20090410
  2. PROPRANOLOL [Concomitant]
     Indication: HYPERTENSION
     Dates: start: 20040501, end: 20090410
  3. LEVOTHYROXINE [Concomitant]
     Indication: HYPOTHYROIDISM
     Dates: start: 20050817, end: 20090410
  4. ARAVA [Concomitant]
     Indication: RHEUMATOID ARTHRITIS
     Dates: start: 20070223, end: 20090410
  5. COMMERCIAL HUMIRA [Concomitant]
     Indication: RHEUMATOID ARTHRITIS
     Route: 058
     Dates: start: 20031215

REACTIONS (25)
  - ALANINE AMINOTRANSFERASE INCREASED [None]
  - AREFLEXIA [None]
  - ASPARTATE AMINOTRANSFERASE INCREASED [None]
  - BACK PAIN [None]
  - CARDIAC FAILURE [None]
  - CARDIAC VALVE VEGETATION [None]
  - ENCEPHALITIS [None]
  - ENDOCARDITIS STAPHYLOCOCCAL [None]
  - ESCHERICHIA INFECTION [None]
  - GLOMERULONEPHRITIS [None]
  - HAEMODYNAMIC INSTABILITY [None]
  - HAEMOGLOBIN DECREASED [None]
  - HEPATOJUGULAR REFLUX [None]
  - HYPERAESTHESIA [None]
  - INTERVERTEBRAL DISCITIS [None]
  - MUSCULOSKELETAL STIFFNESS [None]
  - MYDRIASIS [None]
  - NEUROLOGICAL DECOMPENSATION [None]
  - PLATELET COUNT DECREASED [None]
  - PYELONEPHRITIS [None]
  - RENAL FAILURE [None]
  - SEPSIS [None]
  - STAPHYLOCOCCAL BACTERAEMIA [None]
  - VASCULAR PURPURA [None]
  - WHITE BLOOD CELL COUNT INCREASED [None]
